FAERS Safety Report 5578210-X (Version None)
Quarter: 2007Q4

REPORT INFORMATION
  Report Type: 
  Country: None (occurrence: None)
  Receive Date: 20071231
  Receipt Date: 20071219
  Transmission Date: 20080405
  Serious: Yes (Death)
  Sender: FDA-Public Use
  Company Number: FR-PFIZER INC-2007096507

PATIENT
  Sex: Male

DRUGS (5)
  1. LYRICA [Suspect]
     Indication: SCIATICA
     Route: 048
     Dates: start: 20070501, end: 20070702
  2. FENTANYL [Concomitant]
  3. MORPHINE SULFATE [Concomitant]
     Route: 048
  4. ACETAMINOPHEN W/ PROPOXYPHENE HCL [Concomitant]
     Route: 048
  5. METHYLPREDNISOLONE [Concomitant]
     Route: 030
     Dates: start: 20070601, end: 20070628

REACTIONS (1)
  - RHABDOMYOLYSIS [None]
